FAERS Safety Report 10752034 (Version 2)
Quarter: 2015Q1

REPORT INFORMATION
  Report Type: Spontaneous
  Country: FR (occurrence: FR)
  Receive Date: 20150130
  Receipt Date: 20150206
  Transmission Date: 20150721
  Serious: Yes (Hospitalization, Other)
  Sender: FDA-Public Use
  Company Number: FR-PFIZER INC-2015031133

PATIENT
  Age: 91 Year
  Sex: Female

DRUGS (9)
  1. ESCITALOPRAM [Concomitant]
     Active Substance: ESCITALOPRAM OXALATE
  2. DEDROGYL [Concomitant]
     Active Substance: CALCIFEDIOL
  3. EPREX [Concomitant]
     Active Substance: ERYTHROPOIETIN
  4. AMLOR [Suspect]
     Active Substance: AMLODIPINE BESYLATE
     Indication: HYPERTENSION
     Dosage: 5 MG, 1X/DAY
     Route: 048
     Dates: start: 2012
  5. OMEPRAZOL [Concomitant]
     Active Substance: OMEPRAZOLE
  6. OXEOL [Concomitant]
  7. TRANDOLAPRIL. [Suspect]
     Active Substance: TRANDOLAPRIL
     Indication: HYPERTENSION
     Dosage: 0.5 MG, 1X/DAY
     Route: 048
     Dates: start: 2012, end: 20150102
  8. LASILIX [Suspect]
     Active Substance: FUROSEMIDE
     Indication: HYPERTENSION
     Dosage: 40 MG, 1X/DAY
     Route: 048
     Dates: start: 2012, end: 20150102
  9. FENOFIBRATE. [Concomitant]
     Active Substance: FENOFIBRATE

REACTIONS (3)
  - Chronic kidney disease [Unknown]
  - Condition aggravated [Unknown]
  - Orthostatic hypotension [Not Recovered/Not Resolved]

NARRATIVE: CASE EVENT DATE: 20150101
